FAERS Safety Report 7339332-6 (Version None)
Quarter: 2011Q1

REPORT INFORMATION
  Report Type: 
  Country: None (occurrence: None)
  Receive Date: 20110308
  Receipt Date: 20110214
  Transmission Date: 20110831
  Serious: Yes (Life-Threatening, Hospitalization, Other)
  Sender: FDA-Public Use
  Company Number: FR-PFIZER INC-2011031930

PATIENT
  Age: 52 Year
  Sex: Male

DRUGS (33)
  1. HUMALOG [Concomitant]
     Dosage: UNKNOWN
     Dates: start: 20101001
  2. STILNOX [Concomitant]
     Dosage: 10 MG, 1X/DAY
     Route: 048
     Dates: end: 20100910
  3. FASTURTEC [Concomitant]
     Dosage: 13.5 MG, 1X/DAY
     Route: 042
     Dates: start: 20100802, end: 20100803
  4. DEPO-MEDROL [Suspect]
     Dosage: 40 MG, 1X/DAY
     Route: 037
     Dates: start: 20100809, end: 20100826
  5. AMBISOME [Suspect]
     Dosage: 50 MG, ALTERNATE DAY
     Route: 042
     Dates: start: 20100813, end: 20100914
  6. ZOVIRAX [Suspect]
     Dosage: 1 DF, 2X/DAY
     Route: 042
     Dates: start: 20100818, end: 20100908
  7. VINCRISTINE SULFATE [Suspect]
     Indication: ACUTE LYMPHOCYTIC LEUKAEMIA
     Dosage: 2 MG, CYCLIC, ON 09, 16, 23 AND 30AUG2010
     Route: 042
     Dates: start: 20100809, end: 20100830
  8. CORTANCYL [Suspect]
     Indication: ACUTE LYMPHOCYTIC LEUKAEMIA
     Dosage: 100 MG, 1X/DAY
     Route: 048
     Dates: start: 20100802, end: 20100808
  9. SPASFON [Concomitant]
     Dosage: ONE AMPOULE OCCASIONALLY
     Route: 042
     Dates: start: 20100804, end: 20101001
  10. SERESTA [Concomitant]
     Dosage: 10 MG, 4X/DAY
     Route: 048
     Dates: end: 20100911
  11. ATARAX [Concomitant]
     Dosage: 50 MG, SINGLE
     Route: 042
     Dates: start: 20100805, end: 20100805
  12. SERESTA [Concomitant]
     Dosage: UNK
     Route: 048
     Dates: start: 20101017
  13. ZOPHREN [Concomitant]
     Dosage: 8 MG, 2X/DAY
     Route: 042
     Dates: start: 20100809, end: 20100826
  14. TRANXENE [Concomitant]
     Dosage: 10 MG, 1X/DAY
     Route: 048
     Dates: start: 20100828, end: 20100829
  15. FASTURTEC [Concomitant]
     Dosage: 13.5 MG, 1X/DAY
     Route: 042
     Dates: start: 20100805, end: 20100806
  16. ACTRAPID [Concomitant]
     Dosage: 80 IU, 1X/DAY
     Route: 042
     Dates: start: 20100908, end: 20100930
  17. CONTRAMAL [Concomitant]
     Dosage: 100 MG THREE TO FOUR TIMES A DAY OCCASIONALLY
     Route: 042
     Dates: start: 20100801, end: 20101024
  18. TRANXENE [Concomitant]
     Dosage: 30 MG, 1X/DAY
     Route: 048
     Dates: start: 20100804, end: 20100812
  19. METHOTREXATE SODIUM [Suspect]
     Dosage: 15 MG, 1X/DAY
     Route: 037
     Dates: start: 20100809, end: 20100826
  20. EMEND [Suspect]
     Dosage: 125 MG THEN 80 MG DAILY
     Route: 048
     Dates: start: 20100809, end: 20100820
  21. ENDOXAN [Suspect]
     Indication: ACUTE LYMPHOCYTIC LEUKAEMIA
     Dosage: 1380 MG, SINGLE
     Route: 042
     Dates: start: 20100809, end: 20100809
  22. ENDOXAN [Suspect]
     Dosage: 550 MG, 2X/DAY
     Route: 042
     Dates: start: 20100823, end: 20100826
  23. MOPRAL [Suspect]
     Dosage: 20 MG, 1X/DAY
     Route: 042
     Dates: start: 20100803, end: 20100910
  24. VANCOMYCIN [Suspect]
     Dosage: UNKNOWN
     Route: 042
     Dates: start: 20100804, end: 20100910
  25. KIDROLASE [Suspect]
     Indication: ACUTE LYMPHOCYTIC LEUKAEMIA
     Dosage: 11000 IU, 1X/DAY
     Route: 042
     Dates: start: 20100828, end: 20100906
  26. CORTANCYL [Suspect]
     Dosage: 110.4 MG, 1X/DAY
     Route: 048
     Dates: start: 20100808, end: 20100822
  27. CYTARABINE [Suspect]
     Dosage: 40 MG, 1X/DAY
     Route: 037
     Dates: start: 20100809, end: 20100826
  28. CERUBIDINE [Suspect]
     Indication: ACUTE LYMPHOCYTIC LEUKAEMIA
     Dosage: 92 MG, 1X/DAY
     Route: 042
     Dates: start: 20100809, end: 20100811
  29. CERUBIDINE [Suspect]
     Dosage: 55.2 MG, 1X/DAY
     Route: 042
     Dates: start: 20100823, end: 20100824
  30. ZELITREX [Suspect]
     Dosage: 1 DF, 2X/DAY
     Route: 048
     Dates: start: 20100813, end: 20100818
  31. LANTUS [Concomitant]
     Dosage: 14 TO 32 IU/DAY
     Route: 058
     Dates: end: 20100908
  32. HUMALOG [Concomitant]
     Dosage: BEFORE EACH MEAL
     Route: 058
     Dates: end: 20100823
  33. ACUPAN [Concomitant]
     Dosage: UNK; OCCASIONALLY
     Route: 042
     Dates: start: 20100804

REACTIONS (9)
  - ANAEMIA [None]
  - LEUKOPENIA [None]
  - VANISHING BILE DUCT SYNDROME [None]
  - DIABETES MELLITUS INADEQUATE CONTROL [None]
  - HYPONATRAEMIA [None]
  - THROMBOCYTOPENIA [None]
  - BACTERIAL SEPSIS [None]
  - CHOLESTASIS [None]
  - HYPOPHOSPHATAEMIA [None]
